FAERS Safety Report 4633390-5 (Version None)
Quarter: 2005Q2

REPORT INFORMATION
  Report Type: 
  Country: None (occurrence: None)
  Receive Date: 20050408
  Receipt Date: 20050331
  Transmission Date: 20051028
  Serious: Yes (Hospitalization)
  Sender: FDA-Public Use
  Company Number: 2005US000031

PATIENT
  Age: 7 Year
  Sex: Female
  Weight: 26.6 kg

DRUGS (9)
  1. PROGRAF [Suspect]
     Indication: PROPHYLAXIS AGAINST TRANSPLANT REJECTION
     Dosage: 4.00 MG, BID, ORAL
     Route: 048
  2. ZENAPAX [Suspect]
     Indication: PROPHYLAXIS AGAINST TRANSPLANT REJECTION
     Dosage: 1 MG/KG
     Dates: start: 20040823, end: 20041018
  3. CELLCEPT [Suspect]
     Indication: PROPHYLAXIS AGAINST TRANSPLANT REJECTION
     Dosage: 750.00 MG, UID/QD, ORAL
     Route: 048
  4. PREDNISONE [Concomitant]
  5. VALGANCICLOVIR (VALGANCICLOVIR) [Concomitant]
  6. SEPTRA [Concomitant]
  7. ASPIRIN [Concomitant]
  8. PRILOSEC (OMEPRAZLE) [Concomitant]
  9. MAG PLUS PROTEIN [Concomitant]

REACTIONS (7)
  - ABDOMINAL PAIN [None]
  - BRAIN OEDEMA [None]
  - CEREBRAL VENTRICLE DILATATION [None]
  - DIARRHOEA [None]
  - ENCEPHALITIS [None]
  - ENCEPHALITIS VIRAL [None]
  - ORAL INTAKE REDUCED [None]
